FAERS Safety Report 9288775 (Version 1)
Quarter: 2013Q2

REPORT INFORMATION
  Report Type: Spontaneous
  Country: US (occurrence: US)
  Receive Date: 20130514
  Receipt Date: 20130514
  Transmission Date: 20140414
  Serious: No
  Sender: FDA-Public Use
  Company Number: US-OPTIMER PHARMACEUTICALS, INC.-20110064

PATIENT
  Sex: 0

DRUGS (3)
  1. DIFICID [Suspect]
     Indication: CLOSTRIDIUM DIFFICILE COLITIS
     Dosage: 200 MG, BID
     Route: 048
     Dates: start: 20111123, end: 20111202
  2. POTASSIUM [Concomitant]
     Dosage: UNK
  3. MULTIVITAMIN [Concomitant]
     Dosage: UNK

REACTIONS (3)
  - Abnormal faeces [Recovered/Resolved]
  - Faecal volume increased [Recovered/Resolved]
  - Gastroenteritis viral [Unknown]
